FAERS Safety Report 8394594-1 (Version None)
Quarter: 2012Q2

REPORT INFORMATION
  Report Type: 
  Country: None (occurrence: None)
  Receive Date: 20120525
  Receipt Date: 20120525
  Transmission Date: 20120825
  Serious: Yes (Life-Threatening)
  Sender: FDA-Public Use
  Company Number: None

PATIENT
  Age: 47 Year
  Sex: Female
  Weight: 90.7194 kg

DRUGS (2)
  1. LEVOTHYROXINE SODIUM [Suspect]
     Indication: HYPOTHYROIDISM
     Dosage: 100 MCG ONE A DAY PO
     Route: 048
     Dates: start: 20080514, end: 20120522
  2. PROZAC [Suspect]
     Indication: DEPRESSION
     Dosage: 40 MG ONE A DAY PO
     Route: 048
     Dates: start: 19860716, end: 20120522

REACTIONS (6)
  - DYSPNOEA [None]
  - ARRHYTHMIA [None]
  - DIZZINESS [None]
  - HYPERHIDROSIS [None]
  - INITIAL INSOMNIA [None]
  - FEAR [None]
